FAERS Safety Report 9679988 (Version 2)
Quarter: 2014Q1

REPORT INFORMATION
  Report Type: Spontaneous
  Country: JP (occurrence: JP)
  Receive Date: 20131110
  Receipt Date: 20140225
  Transmission Date: 20141002
  Serious: Yes (Other)
  Sender: FDA-Public Use
  Company Number: PHHY2013JP126530

PATIENT
  Age: 61 Year
  Sex: Female

DRUGS (2)
  1. TEGRETOL [Suspect]
     Indication: TRIGEMINAL NEURALGIA
     Dosage: 200 MG, DAILY
     Route: 048
  2. CRESTOR [Concomitant]
     Dosage: UNK UKN, UNK
     Route: 048

REACTIONS (7)
  - Convulsion [Recovering/Resolving]
  - Dyskinesia [Unknown]
  - Insomnia [Unknown]
  - Feeling hot [Unknown]
  - Muscle twitching [Unknown]
  - Hyperaesthesia [Unknown]
  - Muscle spasms [Recovering/Resolving]
